FAERS Safety Report 24905739 (Version 2)
Quarter: 2025Q1

REPORT INFORMATION
  Report Type: Report from Study
  Country: US (occurrence: US)
  Receive Date: 20250130
  Receipt Date: 20250131
  Transmission Date: 20250409
  Serious: No
  Sender: HRA PHARMA
  Company Number: US-ORG100014127-2024000354

PATIENT
  Age: 27 Year
  Sex: Female

DRUGS (14)
  1. METOPIRONE [Suspect]
     Active Substance: METYRAPONE
     Indication: Adrenal gland cancer
     Dosage: 1 CAPSULE THREE TIMES DAILY
     Dates: start: 20241108
  2. METOPIRONE [Suspect]
     Active Substance: METYRAPONE
     Indication: Adrenal gland cancer
     Dosage: 2 CAPSULE THREE TIMES DAILY
  3. albuterol aer hfa [Concomitant]
     Indication: Product used for unknown indication
  4. amlodipine tab 5mg [Concomitant]
     Indication: Product used for unknown indication
  5. BACTRIM DS [Concomitant]
     Active Substance: SULFAMETHOXAZOLE\TRIMETHOPRIM
     Indication: Product used for unknown indication
  6. cetirizine tab 10mg [Concomitant]
     Indication: Product used for unknown indication
  7. cisplatin powder [Concomitant]
     Indication: Product used for unknown indication
  8. doxorubicin inj 10/5ml [Concomitant]
     Indication: Product used for unknown indication
  9. etoposide powder [Concomitant]
     Indication: Product used for unknown indication
  10. flonase algy spr 50mcg [Concomitant]
     Indication: Product used for unknown indication
  11. lexapro tab 10mg [Concomitant]
     Indication: Product used for unknown indication
  12. LYSODREN [Concomitant]
     Active Substance: MITOTANE
     Indication: Product used for unknown indication
     Route: 048
     Dates: start: 202404, end: 202408
  13. singulair tab 10mg [Concomitant]
     Indication: Product used for unknown indication
     Route: 048
  14. sprintec 28 tab [Concomitant]
     Indication: Product used for unknown indication
     Route: 048

REACTIONS (1)
  - Off label use [Unknown]

NARRATIVE: CASE EVENT DATE: 20241108
